FAERS Safety Report 9152205 (Version 1)
Quarter: 2013Q1

REPORT INFORMATION
  Report Type: Spontaneous
  Country: US (occurrence: US)
  Receive Date: 20130308
  Receipt Date: 20130308
  Transmission Date: 20140127
  Serious: No
  Sender: FDA-Public Use
  Company Number: US-ENDO PHARMACEUTICALS INC.-EMOQ20130001

PATIENT
  Age: 35 Year
  Sex: Female
  Weight: 83.99 kg

DRUGS (2)
  1. EMOQUETTE [Suspect]
     Indication: MENOMETRORRHAGIA
     Dosage: UNKNOWN
     Route: 048
     Dates: start: 201210, end: 20121226
  2. EMOQUETTE [Suspect]
     Indication: DYSMENORRHOEA

REACTIONS (3)
  - Hepatic enzyme increased [Not Recovered/Not Resolved]
  - Deep vein thrombosis [Recovered/Resolved]
  - Pulmonary embolism [Recovered/Resolved]
